FAERS Safety Report 5524890-4 (Version None)
Quarter: 2007Q4

REPORT INFORMATION
  Report Type: 
  Country: None (occurrence: None)
  Receive Date: 20071119
  Receipt Date: 20071107
  Transmission Date: 20080405
  Serious: Yes (Other)
  Sender: FDA-Public Use
  Company Number: A-US2007-18333

PATIENT
  Age: 32 Year
  Sex: Female

DRUGS (6)
  1. VENTAVIS [Suspect]
     Indication: PULMONARY HYPERTENSION
     Dosage: 6.75 UG, RESPIRATORY
     Route: 055
  2. DICOUMARINS [Concomitant]
  3. DIGITALIS (DIGITALIS PURPUREA) [Concomitant]
  4. DIURETICS [Concomitant]
  5. DOBUTAMINE HCL [Concomitant]
  6. PROSTACYCLIN (EPOPROSTENOL) INFUSION [Concomitant]

REACTIONS (7)
  - BLOOD BILIRUBIN INCREASED [None]
  - DRUG EFFECT DECREASED [None]
  - DYSPNOEA [None]
  - HAEMODYNAMIC TEST ABNORMAL [None]
  - REBOUND EFFECT [None]
  - TRANSAMINASES INCREASED [None]
  - TRICUSPID VALVE INCOMPETENCE [None]
